FAERS Safety Report 5147410-5 (Version None)
Quarter: 2006Q4

REPORT INFORMATION
  Report Type: 
  Country: None (occurrence: None)
  Receive Date: 20061106
  Receipt Date: 20061031
  Transmission Date: 20070319
  Serious: Yes (Hospitalization)
  Sender: FDA-Public Use
  Company Number: 002#4#2006-00296

PATIENT
  Age: 65 Year
  Sex: Female
  Weight: 81.6475 kg

DRUGS (14)
  1. ISOSORBIDE MONONITRATE [Suspect]
     Indication: CHEST PAIN
     Dosage: 120 MG, 1 IN 1 D; ORAL
     Route: 048
     Dates: start: 20050101
  2. BISOPROLOL FUMARATE [Concomitant]
  3. DULOXETINE-HYDROCHLORIDE [Concomitant]
  4. DIGOXIN [Concomitant]
  5. FUROSEMIDE [Concomitant]
  6. LEVOTHYROXINE SODIUM [Concomitant]
  7. ESOMEPRAZOLE MAGNESIUM [Concomitant]
  8. HYOSCYAMINE-SULFATE [Concomitant]
  9. ACETYLSALICYLIC ACID SRT [Concomitant]
  10. DOMPERIDONE [Concomitant]
  11. TICLOPIDINE HYDROCHLORIDE [Concomitant]
  12. POTASSIUM CHLORIDE [Concomitant]
  13. DARVOCET [Concomitant]
  14. ALPRAZOLAM [Concomitant]

REACTIONS (5)
  - CARDIAC DISORDER [None]
  - CARDIAC FAILURE CONGESTIVE [None]
  - DRUG INEFFECTIVE [None]
  - DYSPNOEA [None]
  - MYOCARDIAL INFARCTION [None]
